FAERS Safety Report 10733167 (Version 1)
Quarter: 2015Q1

REPORT INFORMATION
  Report Type: Spontaneous
  Country: ES (occurrence: ES)
  Receive Date: 20150123
  Receipt Date: 20150123
  Transmission Date: 20150721
  Serious: Yes (Death, Other)
  Sender: FDA-Public Use
  Company Number: PHHY2015ES007993

PATIENT
  Age: 41 Year
  Sex: Male

DRUGS (11)
  1. LANREOTIDE [Suspect]
     Active Substance: LANREOTIDE
     Indication: THYMIC CANCER METASTATIC
     Dosage: 60 MG, UNK
     Route: 030
     Dates: start: 201202
  2. SUNITINIB [Concomitant]
     Active Substance: SUNITINIB
     Indication: THYMIC CANCER METASTATIC
     Route: 065
  3. CISPLATIN. [Suspect]
     Active Substance: CISPLATIN
     Indication: THYMIC CANCER METASTATIC
     Route: 065
  4. PACLITAXEL. [Concomitant]
     Active Substance: PACLITAXEL
     Indication: THYMIC CANCER METASTATIC
     Route: 065
  5. CARBOPLATIN. [Concomitant]
     Active Substance: CARBOPLATIN
     Indication: THYMIC CANCER METASTATIC
     Route: 065
  6. GEFITINIB [Concomitant]
     Active Substance: GEFITINIB
     Indication: THYMIC CANCER METASTATIC
     Route: 065
  7. DOXORUBICIN [Suspect]
     Active Substance: DOXORUBICIN
     Indication: THYMIC CANCER METASTATIC
     Route: 065
  8. PREDNISONE. [Suspect]
     Active Substance: PREDNISONE
     Indication: THYMIC CANCER METASTATIC
     Dosage: 100 MG, QD
     Route: 065
     Dates: start: 201202
  9. IFOSFAMIDE. [Suspect]
     Active Substance: IFOSFAMIDE
     Indication: THYMIC CANCER METASTATIC
     Route: 065
  10. CYCLOPHOSPHAMIDE. [Suspect]
     Active Substance: CYCLOPHOSPHAMIDE
     Indication: THYMIC CANCER METASTATIC
     Dosage: 50 MG, QD
     Route: 048
     Dates: start: 201202
  11. ETOPOSIDE. [Suspect]
     Active Substance: ETOPOSIDE
     Indication: THYMIC CANCER METASTATIC
     Route: 065

REACTIONS (5)
  - Death [Fatal]
  - Drug effect incomplete [Unknown]
  - Renal impairment [Unknown]
  - Anaemia [Unknown]
  - Fatigue [Unknown]

NARRATIVE: CASE EVENT DATE: 201311
